FAERS Safety Report 12848802 (Version 1)
Quarter: 2016Q4

REPORT INFORMATION
  Report Type: Spontaneous
  Country: US (occurrence: US)
  Receive Date: 20161014
  Receipt Date: 20161014
  Transmission Date: 20170207
  Serious: No
  Sender: FDA-Public Use
  Company Number: US-JNJFOC-20160810150

PATIENT
  Age: 11 Year
  Sex: Female
  Weight: 53.52 kg

DRUGS (2)
  1. TYLENOL CHILDRENS SUSPENSION [Suspect]
     Active Substance: ACETAMINOPHEN
     Indication: ABDOMINAL PAIN UPPER
     Route: 048
  2. TYLENOL CHILDRENS SUSPENSION [Suspect]
     Active Substance: ACETAMINOPHEN
     Indication: GASTROENTERITIS VIRAL
     Route: 048

REACTIONS (2)
  - Drug ineffective for unapproved indication [Unknown]
  - Off label use [Unknown]
